FAERS Safety Report 7557138-X (Version None)
Quarter: 2011Q2

REPORT INFORMATION
  Report Type: 
  Country: None (occurrence: None)
  Receive Date: 20110620
  Receipt Date: 20110616
  Transmission Date: 20111010
  Serious: Yes (Other)
  Sender: FDA-Public Use
  Company Number: VE-PFIZER INC-2011121062

PATIENT
  Age: 66 Year
  Sex: Female

DRUGS (6)
  1. ATACAND [Concomitant]
     Dosage: 25 MG, 1X/DAY
     Route: 048
  2. OMEPRAZOLE [Concomitant]
     Dosage: 40 MG, 2X/DAY
     Route: 048
  3. ALPRAZOLAM [Concomitant]
     Dosage: 1 MG, 1X/DAY
     Route: 048
  4. ZOLOFT [Suspect]
     Indication: DEPRESSION
     Dosage: 100 MG, 1X/DAY
     Route: 048
     Dates: start: 20040101
  5. GLYBURIDE [Concomitant]
     Dosage: 500 MG, 2X/DAY
     Route: 048
  6. ATACAND [Concomitant]
     Dosage: 16 MG, 1X/DAY
     Route: 048

REACTIONS (2)
  - ASTHENIA [None]
  - CEREBRAL INFARCTION [None]
